FAERS Safety Report 7208359-7 (Version None)
Quarter: 2011Q1

REPORT INFORMATION
  Report Type: 
  Country: None (occurrence: None)
  Receive Date: 20110104
  Receipt Date: 20101222
  Transmission Date: 20110831
  Serious: Yes (Other)
  Sender: FDA-Public Use
  Company Number: PHHY2010US66118

PATIENT
  Sex: Female

DRUGS (4)
  1. RECLAST [Suspect]
  2. DIGOXIN [Concomitant]
  3. WARFARIN [Concomitant]
  4. COREG [Concomitant]

REACTIONS (1)
  - ARTHROPATHY [None]
